FAERS Safety Report 25394644 (Version 1)
Quarter: 2025Q2

REPORT INFORMATION
  Report Type: Report from Study
  Country: US (occurrence: US)
  Receive Date: 20250604
  Receipt Date: 20250604
  Transmission Date: 20250716
  Serious: Yes (Other)
  Sender: AUROBINDO
  Company Number: US-AUROBINDO-AUR-APL-2025-027935

PATIENT
  Age: 59 Year
  Sex: Male

DRUGS (8)
  1. FLUPHENAZINE DECANOATE [Suspect]
     Active Substance: FLUPHENAZINE DECANOATE
     Indication: Schizophrenia
     Route: 065
  2. LORAZEPAM [Concomitant]
     Active Substance: LORAZEPAM
     Indication: Catatonia
     Dosage: 1 MILLIGRAM, 3 TIMES A DAY
     Route: 048
  3. LORAZEPAM [Concomitant]
     Active Substance: LORAZEPAM
     Indication: Schizophrenia
     Dosage: 3 MILLIGRAM, FOUR TIMES/DAY
     Route: 065
  4. MEMANTINE [Concomitant]
     Active Substance: MEMANTINE
     Indication: Catatonia
  5. MEMANTINE [Concomitant]
     Active Substance: MEMANTINE
     Indication: Schizophrenia
  6. VALPROIC ACID [Concomitant]
     Active Substance: VALPROIC ACID
     Indication: Catatonia
     Route: 048
  7. VALPROIC ACID [Concomitant]
     Active Substance: VALPROIC ACID
     Indication: Schizophrenia
  8. BENZTROPINE [Concomitant]
     Active Substance: BENZTROPINE
     Indication: Parkinsonism
     Dosage: 1 MILLIGRAM, TWO TIMES A DAY
     Route: 065

REACTIONS (1)
  - Drug intolerance [Unknown]
